FAERS Safety Report 8201496-X (Version None)
Quarter: 2012Q1

REPORT INFORMATION
  Report Type: 
  Country: None (occurrence: None)
  Receive Date: 20120312
  Receipt Date: 20120302
  Transmission Date: 20120608
  Serious: Yes (Hospitalization)
  Sender: FDA-Public Use
  Company Number: US-ASTRAZENECA-2012SE14757

PATIENT
  Age: 55 Year
  Sex: Female

DRUGS (1)
  1. SYMBICORT [Suspect]
     Dosage: 640 MCG, 2 PUFFS BID
     Route: 055
     Dates: start: 20120201

REACTIONS (3)
  - FATIGUE [None]
  - RHINORRHOEA [None]
  - PNEUMONIA [None]
